FAERS Safety Report 5711367-6 (Version None)
Quarter: 2008Q2

REPORT INFORMATION
  Report Type: 
  Country: None (occurrence: None)
  Receive Date: 20080421
  Receipt Date: 20080417
  Transmission Date: 20081010
  Serious: Yes (Hospitalization)
  Sender: FDA-Public Use
  Company Number: B0517352A

PATIENT
  Age: 29 Year
  Sex: Female

DRUGS (1)
  1. ZOVIRAX [Suspect]
     Indication: HERPES OPHTHALMIC
     Dosage: 1200MG PER DAY
     Route: 048
     Dates: start: 20080320, end: 20080325

REACTIONS (4)
  - ASTHENIA [None]
  - HEADACHE [None]
  - LIP OEDEMA [None]
  - URTICARIA [None]
